FAERS Safety Report 7137854-4 (Version None)
Quarter: 2010Q4

REPORT INFORMATION
  Report Type: 
  Country: None (occurrence: None)
  Receive Date: 20101206
  Receipt Date: 20101203
  Transmission Date: 20110411
  Serious: Yes (Life-Threatening)
  Sender: FDA-Public Use
  Company Number: US-NAPPMUNDI-USA-2010-0047159

PATIENT
  Sex: Male

DRUGS (2)
  1. OXYCONTIN [Suspect]
     Indication: BACK PAIN
     Dosage: 160 MG, TID
     Route: 048
     Dates: start: 20080101
  2. OXYCONTIN [Suspect]
     Dosage: UNK

REACTIONS (2)
  - COMA [None]
  - UNEVALUABLE EVENT [None]
